FAERS Safety Report 4385926-X (Version None)
Quarter: 2004Q2

REPORT INFORMATION
  Report Type: 
  Country: None (occurrence: None)
  Receive Date: 20040622
  Receipt Date: 20040520
  Transmission Date: 20050107
  Serious: Yes (Hospitalization)
  Sender: FDA-Public Use
  Company Number: 2004-06562

PATIENT
  Age: 21 Year
  Sex: Male

DRUGS (1)
  1. ADEFOVIR DIPIVOXIL (ADEFOVIR DIPIVOXIL) (TABLET) [Suspect]
     Indication: HEPATITIS B
     Dosage: 10 MG, ONCE A DAY, ORAL
     Route: 048
     Dates: start: 20030213, end: 20031120

REACTIONS (1)
  - HEPATITIS [None]
